FAERS Safety Report 6090523-4 (Version None)
Quarter: 2009Q1

REPORT INFORMATION
  Report Type: 
  Country: None (occurrence: None)
  Receive Date: 20090219
  Receipt Date: 20090212
  Transmission Date: 20090719
  Serious: Yes (Hospitalization)
  Sender: FDA-Public Use
  Company Number: 200914656

PATIENT
  Sex: Female

DRUGS (1)
  1. CARIMUNE [Suspect]
     Dosage: IV
     Route: 042

REACTIONS (5)
  - BRADYCARDIA [None]
  - CHEST PAIN [None]
  - HYPERHIDROSIS [None]
  - HYPOTENSION [None]
  - INFUSION RELATED REACTION [None]
